FAERS Safety Report 10869249 (Version 3)
Quarter: 2016Q2

REPORT INFORMATION
  Report Type: Spontaneous
  Country: US (occurrence: US)
  Receive Date: 20150225
  Receipt Date: 20160411
  Transmission Date: 20160815
  Serious: No
  Sender: FDA-Public Use
  Company Number: US-LUNDBECK-DKLU1108508

PATIENT
  Sex: Male

DRUGS (4)
  1. NORTHERA [Suspect]
     Active Substance: DROXIDOPA
     Indication: EXTRAPYRAMIDAL DISORDER
  2. NORTHERA [Suspect]
     Active Substance: DROXIDOPA
     Indication: MULTIPLE SYSTEM ATROPHY
  3. NORTHERA [Suspect]
     Active Substance: DROXIDOPA
     Indication: BASAL GANGLION DEGENERATION
  4. NORTHERA [Suspect]
     Active Substance: DROXIDOPA
     Indication: PARKINSON^S DISEASE
     Route: 048
     Dates: start: 201412

REACTIONS (3)
  - Dyspepsia [Not Recovered/Not Resolved]
  - Product difficult to swallow [Unknown]
  - Abdominal pain upper [Not Recovered/Not Resolved]
